FAERS Safety Report 4367073-6 (Version None)
Quarter: 2004Q2

REPORT INFORMATION
  Report Type: 
  Country: None (occurrence: None)
  Receive Date: 20040528
  Receipt Date: 20040504
  Transmission Date: 20050107
  Serious: Yes (Other)
  Sender: FDA-Public Use
  Company Number: US-MERCK-0405USA00183

PATIENT
  Sex: Female

DRUGS (7)
  1. PROVENTIL [Concomitant]
     Route: 065
  2. FLOVENT [Concomitant]
     Route: 065
  3. SINGULAIR [Suspect]
     Indication: ASTHMA
     Route: 048
     Dates: start: 20030201, end: 20040401
  4. SINGULAIR [Suspect]
     Route: 048
     Dates: start: 20040427, end: 20040506
  5. SINGULAIR [Suspect]
     Route: 048
     Dates: start: 20040506
  6. SEREVENT [Concomitant]
     Route: 065
  7. THEOPHYLLINE [Concomitant]
     Route: 065

REACTIONS (4)
  - DRUG INEFFECTIVE [None]
  - DYSPNOEA [None]
  - PHARMACEUTICAL PRODUCT COMPLAINT [None]
  - WHEEZING [None]
